FAERS Safety Report 9671040 (Version 1)
Quarter: 2013Q4

REPORT INFORMATION
  Report Type: Spontaneous
  Country: US (occurrence: US)
  Receive Date: 20131106
  Receipt Date: 20131106
  Transmission Date: 20140711
  Serious: No
  Sender: FDA-Public Use
  Company Number: US-BAYER-2013-134953

PATIENT
  Age: 63 Year
  Sex: Female
  Weight: 91 kg

DRUGS (3)
  1. ALEVE CAPLET [Suspect]
     Indication: BACK PAIN
     Dosage: 1 DF, EVERY NIGHT
     Route: 048
  2. ALEVE CAPLET [Suspect]
     Indication: HEADACHE
  3. ALEVE CAPLET [Suspect]
     Indication: ARTHRALGIA

REACTIONS (1)
  - Incorrect drug administration duration [None]
